FAERS Safety Report 20583569 (Version 2)
Quarter: 2022Q1

REPORT INFORMATION
  Report Type: Report from Study
  Country: US (occurrence: US)
  Receive Date: 20220311
  Receipt Date: 20220328
  Transmission Date: 20220424
  Serious: Yes (Hospitalization)
  Sender: FDA-Public Use
  Company Number: US-UPSHER-SMITH LABORATORIES, LLC-2022USL00128

PATIENT
  Age: 0 Year
  Sex: Male
  Weight: 11.791 kg

DRUGS (2)
  1. VIGADRONE [Suspect]
     Active Substance: VIGABATRIN
     Indication: Infantile spasms
     Dosage: 20 ML, 2X/DAY
     Route: 048
     Dates: start: 20220126, end: 2022
  2. VIGADRONE [Suspect]
     Active Substance: VIGABATRIN
     Dosage: UNK ^WEAN OFF^
     Dates: start: 2022, end: 202203

REACTIONS (4)
  - COVID-19 pneumonia [Not Recovered/Not Resolved]
  - Sepsis [Not Recovered/Not Resolved]
  - Cardiogenic shock [Not Recovered/Not Resolved]
  - Drug ineffective [Recovered/Resolved]

NARRATIVE: CASE EVENT DATE: 20220126
